FAERS Safety Report 16773887 (Version 6)
Quarter: 2020Q2

REPORT INFORMATION
  Report Type: Spontaneous
  Country: PT (occurrence: PT)
  Receive Date: 20190904
  Receipt Date: 20200413
  Transmission Date: 20200713
  Serious: Yes (Life-Threatening, Hospitalization, Other)
  Sender: FDA-Public Use
  Company Number: PT-AUROBINDO-AUR-APL-2019-057575

PATIENT
  Age: 51 Year
  Sex: Female
  Weight: 72 kg

DRUGS (15)
  1. CHLORDIAZEPOXIDE. [Interacting]
     Active Substance: CHLORDIAZEPOXIDE
     Indication: WEIGHT CONTROL
     Dosage: 10 MILLIGRAM, ONCE A DAY
     Route: 048
     Dates: start: 201706, end: 201807
  2. CITRUS SINENSIS [Suspect]
     Active Substance: HERBALS\ORANGE
     Indication: WEIGHT CONTROL
     Dosage: 200 MILLIGRAM, ONCE A DAY
     Route: 048
     Dates: start: 201706, end: 201807
  3. LEVOTHYROXINE SODIUM. [Concomitant]
     Active Substance: LEVOTHYROXINE SODIUM
     Indication: HYPOTHYROIDISM
     Dosage: 0.1 MILLIGRAM,1 YEAR
     Route: 048
     Dates: start: 2014
  4. ETHINYLESTRADIOL+GESTODEN [Suspect]
     Active Substance: ETHINYL ESTRADIOL\GESTODENE
     Indication: ORAL CONTRACEPTION
     Dosage: UNK (0.03  / 0.075 MG)
     Route: 048
  5. CASCARA SAGRADA [Interacting]
     Active Substance: FRANGULA PURSHIANA BARK
     Indication: WEIGHT CONTROL
     Dosage: 60 MILLIGRAM, ONCE A DAY
     Route: 065
     Dates: start: 201706, end: 201807
  6. HOODIA GORDONII [Interacting]
     Active Substance: DIETARY SUPPLEMENT
     Indication: WEIGHT CONTROL
     Dosage: 70 MILLIGRAM, ONCE A DAY
     Route: 048
     Dates: start: 201706, end: 201807
  7. FRANGULA PURSHIANA [Interacting]
     Active Substance: HERBALS
     Indication: WEIGHT DECREASED
     Dosage: UNK
     Route: 065
  8. TOPIRAMATE. [Interacting]
     Active Substance: TOPIRAMATE
     Indication: WEIGHT CONTROL
     Dosage: 35 MILLIGRAM, ONCE A DAY
     Route: 048
     Dates: start: 201706, end: 201807
  9. ETHINYLESTRADIOL+GESTODEN [Interacting]
     Active Substance: ETHINYL ESTRADIOL\GESTODENE
     Indication: WEIGHT CONTROL
  10. FUROSEMIDE. [Interacting]
     Active Substance: FUROSEMIDE
     Indication: WEIGHT DECREASED
     Dosage: 30 MILLIGRAM, ONCE A DAY
     Route: 048
     Dates: start: 201706, end: 201807
  11. METFORMIN [Interacting]
     Active Substance: METFORMIN HYDROCHLORIDE
     Indication: WEIGHT DECREASED
     Dosage: 230 MILLIGRAM, ONCE A DAY
     Route: 048
     Dates: start: 201706, end: 201807
  12. WELLBUTRIN [Interacting]
     Active Substance: BUPROPION HYDROCHLORIDE
     Indication: WEIGHT CONTROL
     Dosage: UNK
     Route: 065
  13. GESTODENE [Suspect]
     Active Substance: GESTODENE
     Indication: ORAL CONTRACEPTION
     Dosage: 0.08 MILLIGRAM, 0.075 MG, UNK
     Route: 048
  14. BUPROPION. [Interacting]
     Active Substance: BUPROPION
     Indication: WEIGHT DECREASED
     Dosage: 120 MILLIGRAM, ONCE A DAY
     Route: 048
     Dates: start: 201706, end: 201807
  15. TRI-GYNERA [Interacting]
     Active Substance: ETHINYL ESTRADIOL\GESTODENE
     Indication: CONTRACEPTION
     Dosage: UNK
     Route: 048
     Dates: start: 2002, end: 201807

REACTIONS (6)
  - Off label use [Unknown]
  - Headache [Recovering/Resolving]
  - Drug interaction [Unknown]
  - Cerebral venous thrombosis [Unknown]
  - Product use in unapproved indication [Unknown]
  - Intentional product misuse [Unknown]

NARRATIVE: CASE EVENT DATE: 20180619
